FAERS Safety Report 5753734-0 (Version None)
Quarter: 2008Q2

REPORT INFORMATION
  Report Type: 
  Country: None (occurrence: None)
  Receive Date: 20080530
  Receipt Date: 20080521
  Transmission Date: 20081010
  Serious: Yes (Other)
  Sender: FDA-Public Use
  Company Number: US-BAYER-200811973BCC

PATIENT
  Sex: Male
  Weight: 82 kg

DRUGS (3)
  1. ONE A DAY MENS HEALTH FORMULA [Suspect]
     Indication: VITAMIN SUPPLEMENTATION
     Dosage: TOTAL DAILY DOSE: 1 DF  UNIT DOSE: 1 DF
     Route: 048
     Dates: end: 20050513
  2. ASPIRIN [Suspect]
     Indication: ISCHAEMIC HEART DISEASE PROPHYLAXIS
     Route: 048
  3. BLOOD PRESSURE MEDICATION [Concomitant]

REACTIONS (1)
  - TYPE 2 DIABETES MELLITUS [None]
